FAERS Safety Report 9425575 (Version 1)
Quarter: 2013Q3

REPORT INFORMATION
  Report Type: Spontaneous
  Country: US (occurrence: US)
  Receive Date: 20130729
  Receipt Date: 20130729
  Transmission Date: 20140515
  Serious: No
  Sender: FDA-Public Use
  Company Number: US-MYLANLABS-2013S1003748

PATIENT
  Age: 67 Year
  Sex: Female
  Weight: 72.58 kg

DRUGS (6)
  1. LEVOTHYROXINE SODIUM TABLETS, USP [Suspect]
     Indication: HYPOTHYROIDISM
     Route: 048
     Dates: start: 20130107
  2. LISINOPRIL [Concomitant]
     Route: 048
  3. AMLODIPINE [Concomitant]
     Route: 048
  4. CALCITONIN [Concomitant]
     Route: 045
  5. MUCINEX [Concomitant]
  6. ACEBUTOLOL [Concomitant]

REACTIONS (4)
  - Drug effect decreased [Recovering/Resolving]
  - Fatigue [Recovering/Resolving]
  - Asthenia [Recovering/Resolving]
  - Memory impairment [Recovering/Resolving]
